FAERS Safety Report 9714526 (Version 2)
Quarter: 2013Q4

REPORT INFORMATION
  Report Type: Spontaneous
  Country: US (occurrence: US)
  Receive Date: 20131126
  Receipt Date: 20131126
  Transmission Date: 20140711
  Serious: Yes (Hospitalization, Other)
  Sender: FDA-Public Use
  Company Number: US-009507513-1111USA03158

PATIENT
  Sex: Female

DRUGS (4)
  1. FOSAMAX [Suspect]
     Indication: OSTEOPOROSIS
     Dosage: 70 MG, QW
     Route: 048
     Dates: start: 1998, end: 2008
  2. CALTRATE (CALCIUM CARBONATE) [Concomitant]
     Dosage: 600 MG, QD
  3. CENTRUM (MINERALS (UNSPECIFIED) (+) VITAMINS (UNSPECIFIED)) [Concomitant]
     Route: 048
  4. ALENDRONATE SODIUM [Suspect]
     Indication: OSTEOPOROSIS
     Dosage: 70 MG, QW
     Route: 048
     Dates: start: 20080623, end: 20110217

REACTIONS (24)
  - Femur fracture [Unknown]
  - Fall [Unknown]
  - Open reduction of fracture [Unknown]
  - Femur fracture [Unknown]
  - Wrist fracture [Recovered/Resolved]
  - Intramedullary rod insertion [Unknown]
  - Fall [Unknown]
  - Upper limb fracture [Unknown]
  - Fall [Unknown]
  - Hypothyroidism [Unknown]
  - Hip arthroplasty [Unknown]
  - Shoulder operation [Unknown]
  - Herpes zoster [Unknown]
  - Fall [Unknown]
  - Laceration [Unknown]
  - Infection [Unknown]
  - Renal transplant [Unknown]
  - Renal failure chronic [Unknown]
  - Renal failure chronic [Unknown]
  - Atrial fibrillation [Unknown]
  - Sick sinus syndrome [Unknown]
  - Cardiac pacemaker insertion [Unknown]
  - Hyperlipidaemia [Unknown]
  - Joint injury [Unknown]
